FAERS Safety Report 5689084-0 (Version None)
Quarter: 2008Q1

REPORT INFORMATION
  Report Type: 
  Country: None (occurrence: None)
  Receive Date: 20080331
  Receipt Date: 20070314
  Transmission Date: 20080703
  Serious: Yes (Death)
  Sender: FDA-Public Use
  Company Number: CA-ROCHE-487823

PATIENT
  Age: 69 Year
  Sex: Male

DRUGS (3)
  1. XELODA [Suspect]
     Indication: COLORECTAL CANCER
     Route: 048
     Dates: start: 20070123, end: 20070301
  2. FOLFOX [Concomitant]
     Indication: COLORECTAL CANCER
  3. FOLFIRI [Concomitant]
     Indication: COLORECTAL CANCER

REACTIONS (1)
  - DEATH [None]
